FAERS Safety Report 11243733 (Version 1)
Quarter: 2015Q3

REPORT INFORMATION
  Report Type: Spontaneous
  Country: US (occurrence: US)
  Receive Date: 20150707
  Receipt Date: 20150707
  Transmission Date: 20151125
  Serious: No
  Sender: FDA-Public Use
  Company Number: US-DSJP-DSU-2014-126704

PATIENT
  Sex: Male

DRUGS (3)
  1. WELCHOL [Suspect]
     Active Substance: COLESEVELAM HYDROCHLORIDE
     Indication: DIABETES MELLITUS
  2. WELCHOL [Suspect]
     Active Substance: COLESEVELAM HYDROCHLORIDE
     Indication: HYPERCHOLESTEROLAEMIA
     Dosage: 625 MG, BID
     Route: 048
     Dates: start: 2014, end: 2014
  3. FENOFIBRATE. [Concomitant]
     Active Substance: FENOFIBRATE
     Indication: BLOOD TRIGLYCERIDES INCREASED

REACTIONS (2)
  - Feeling abnormal [Recovered/Resolved]
  - Drug administration error [Recovered/Resolved]

NARRATIVE: CASE EVENT DATE: 2014
